FAERS Safety Report 7506171-2 (Version None)
Quarter: 2011Q2

REPORT INFORMATION
  Report Type: 
  Country: None (occurrence: None)
  Receive Date: 20110526
  Receipt Date: 20110520
  Transmission Date: 20111010
  Serious: Yes (Other)
  Sender: FDA-Public Use
  Company Number: US-PFIZER INC-2011109767

PATIENT
  Sex: Male
  Weight: 28.118 kg

DRUGS (3)
  1. VICODIN [Concomitant]
     Dosage: UNK
  2. CLEOCIN [Suspect]
     Indication: TOOTH INFECTION
     Dosage: 150 MG, 3X/DAY
     Route: 048
     Dates: start: 20110515
  3. MOTRIN [Concomitant]
     Indication: PAIN
     Dosage: UNK

REACTIONS (2)
  - DRUG INEFFECTIVE [None]
  - INFECTION [None]
